FAERS Safety Report 8880385 (Version 1)
Quarter: 2012Q4

REPORT INFORMATION
  Report Type: 
  Country: US (occurrence: US)
  Receive Date: 20121031
  Receipt Date: 20121031
  Transmission Date: 20130627
  Serious: Yes (Other)
  Sender: FDA-Public Use
  Company Number: US-ASTRAZENECA-2012SE16107

PATIENT
  Age: 59 Year
  Sex: Female

DRUGS (2)
  1. NEXIUM [Suspect]
     Route: 048
  2. CHEMOTHERAPY [Concomitant]
     Route: 048

REACTIONS (5)
  - Upper limb fracture [Unknown]
  - Blood pressure fluctuation [Unknown]
  - Sinusitis [Unknown]
  - Ear pain [Unknown]
  - Malaise [Unknown]
